FAERS Safety Report 7268149-6 (Version None)
Quarter: 2011Q1

REPORT INFORMATION
  Report Type: 
  Country: None (occurrence: None)
  Receive Date: 20110201
  Receipt Date: 20110121
  Transmission Date: 20110831
  Serious: Yes (Other)
  Sender: FDA-Public Use
  Company Number: US-ASTRAZENECA-2011SE04088

PATIENT
  Sex: Female

DRUGS (2)
  1. SYMBICORT [Concomitant]
     Route: 055
  2. NEXIUM [Suspect]
     Route: 048

REACTIONS (1)
  - SKIN CANCER [None]
